FAERS Safety Report 4450746-4 (Version None)
Quarter: 2004Q3

REPORT INFORMATION
  Report Type: 
  Country: None (occurrence: None)
  Receive Date: 20040913
  Receipt Date: 20040526
  Transmission Date: 20050211
  Serious: No
  Sender: FDA-Public Use
  Company Number: 2004-BP-04172BP(0)

PATIENT
  Age: 70 Year
  Sex: Female

DRUGS (6)
  1. SPIRIVA [Suspect]
     Indication: CHRONIC OBSTRUCTIVE AIRWAYS DISEASE
     Dosage: 18 MCG (18 MCG), IH
     Dates: start: 20040519
  2. PREVACID [Concomitant]
  3. PLAVIX [Concomitant]
  4. ZOCOR [Concomitant]
  5. ZYRTEC [Concomitant]
  6. ADVAIR (SERETIDE MITE) [Concomitant]

REACTIONS (4)
  - CONJUNCTIVITIS [None]
  - NASAL DRYNESS [None]
  - PRURITUS [None]
  - RASH [None]
